FAERS Safety Report 9417238 (Version 1)
Quarter: 2013Q3

REPORT INFORMATION
  Report Type: Spontaneous
  Country: US (occurrence: None)
  Receive Date: 20130722
  Receipt Date: 20130722
  Transmission Date: 20140515
  Serious: Yes (Death)
  Sender: FDA-Public Use
  Company Number: None

PATIENT
  Age: 77 Year
  Sex: Female

DRUGS (1)
  1. EXJADE 500MG NOVARTIS [Suspect]
     Dosage: 500MG BID PO
     Route: 048
     Dates: start: 20120524, end: 20130501

REACTIONS (2)
  - Dizziness [None]
  - Balance disorder [None]
